FAERS Safety Report 15678378 (Version 2)
Quarter: 2019Q1

REPORT INFORMATION
  Report Type: Spontaneous
  Country: US (occurrence: US)
  Receive Date: 20181201
  Receipt Date: 20190103
  Transmission Date: 20190417
  Serious: No
  Sender: FDA-Public Use
  Company Number: US-PFIZER INC-2018492671

PATIENT
  Age: 62 Year
  Sex: Female

DRUGS (1)
  1. IBRANCE [Suspect]
     Active Substance: PALBOCICLIB
     Indication: BREAST CANCER FEMALE
     Dosage: 125 MG, CYCLIC (TAKE 1 CAPSULE BY MOUTH DAILY FOR 21 DAYS EVERY 28 DAYS)
     Route: 048
     Dates: start: 201811

REACTIONS (2)
  - Fatigue [Unknown]
  - Hunger [Unknown]

NARRATIVE: CASE EVENT DATE: 201811
